FAERS Safety Report 5590068-1 (Version None)
Quarter: 2008Q1

REPORT INFORMATION
  Report Type: 
  Country: None (occurrence: None)
  Receive Date: 20080114
  Receipt Date: 20070202
  Transmission Date: 20080703
  Serious: No
  Sender: FDA-Public Use
  Company Number: US-ABBOTT-07P-163-0358579-00

PATIENT
  Sex: Female

DRUGS (2)
  1. OMNICEF [Suspect]
     Indication: EAR INFECTION
     Route: 048
     Dates: start: 20070115, end: 20070129
  2. EXTENDRYL [Concomitant]
     Indication: DRUG USE FOR UNKNOWN INDICATION

REACTIONS (2)
  - FAECES DISCOLOURED [None]
  - MOOD SWINGS [None]
